FAERS Safety Report 6212298-8 (Version None)
Quarter: 2009Q2

REPORT INFORMATION
  Report Type: 
  Country: None (occurrence: None)
  Receive Date: 20090529
  Receipt Date: 20090514
  Transmission Date: 20091009
  Serious: Yes (Hospitalization)
  Sender: FDA-Public Use
  Company Number: 8022359

PATIENT
  Age: 47 Year
  Sex: Female
  Weight: 72 kg

DRUGS (8)
  1. CERTOLIZUMAB PEGOL [Suspect]
     Indication: RHEUMATOID ARTHRITIS
     Dosage: 400 MG 1/2W SC
     Route: 058
     Dates: start: 20050816, end: 20060801
  2. CERTOLIZUMAB PEGOL [Suspect]
     Indication: RHEUMATOID ARTHRITIS
     Dosage: 400 MG 1/2W SC
     Route: 058
     Dates: start: 20060829, end: 20070131
  3. METHOTREXATE [Concomitant]
  4. FOLIC ACID [Concomitant]
  5. NIMESULIDE [Concomitant]
  6. BISEPTOL [Concomitant]
  7. ARBIDOL [Concomitant]
  8. FERVEX [Concomitant]

REACTIONS (4)
  - LOBAR PNEUMONIA [None]
  - RESPIRATORY TRACT INFECTION VIRAL [None]
  - URTICARIA [None]
  - UTERINE CANCER [None]
